FAERS Safety Report 8826545 (Version 1)
Quarter: 2012Q4

REPORT INFORMATION
  Report Type: 
  Country: US (occurrence: US)
  Receive Date: 20121005
  Receipt Date: 20121005
  Transmission Date: 20130627
  Serious: Yes (Death)
  Sender: FDA-Public Use
  Company Number: US-ROCHE-1130172

PATIENT
  Sex: Male

DRUGS (12)
  1. RITUXAN [Suspect]
     Indication: DIFFUSE LARGE B-CELL LYMPHOMA
     Route: 065
     Dates: start: 20001026
  2. RITUXAN [Suspect]
     Indication: DIFFUSE LARGE B-CELL LYMPHOMA
     Route: 065
     Dates: start: 20001106
  3. RITUXAN [Suspect]
     Route: 065
     Dates: start: 20001113
  4. RITUXAN [Suspect]
     Route: 065
     Dates: start: 20001120
  5. RITUXAN [Suspect]
     Route: 065
     Dates: start: 20001127
  6. RITUXAN [Suspect]
     Route: 065
     Dates: start: 20001202
  7. RITUXAN [Suspect]
     Route: 065
     Dates: start: 20001208
  8. RITUXAN [Suspect]
     Route: 065
     Dates: start: 20010109
  9. CYCLOPHOSPHAMIDE [Concomitant]
     Route: 065
     Dates: start: 20001208
  10. HYDROXYDAUNORUBICIN [Concomitant]
     Route: 065
     Dates: start: 20001208
  11. ONCOVIN [Concomitant]
     Route: 065
     Dates: start: 20001208
  12. PREDNISOLONE [Concomitant]
     Route: 065
     Dates: start: 20001208

REACTIONS (1)
  - Death [Fatal]
